FAERS Safety Report 15219563 (Version 3)
Quarter: 2018Q4

REPORT INFORMATION
  Report Type: Spontaneous
  Country: FR (occurrence: FR)
  Receive Date: 20180731
  Receipt Date: 20181219
  Transmission Date: 20190204
  Serious: Yes (Death, Hospitalization, Other)
  Sender: FDA-Public Use
  Company Number: FR-AUROBINDO-AUR-APL-2018-038146

PATIENT
  Age: 56 Year
  Sex: Male

DRUGS (15)
  1. HYDROXYZINE HYDROCHLORIDE. [Suspect]
     Active Substance: HYDROXYZINE HYDROCHLORIDE
     Indication: PRODUCT USED FOR UNKNOWN INDICATION
     Dosage: 100 MG, UNK
     Route: 065
     Dates: start: 20080621
  2. PARACETAMOL [Concomitant]
     Active Substance: ACETAMINOPHEN
     Indication: PRODUCT USED FOR UNKNOWN INDICATION
     Dosage: UNK
  3. XANAX [Suspect]
     Active Substance: ALPRAZOLAM
     Indication: PSYCHOTIC DISORDER
     Dosage: 3 DOSAGE FORM, 3 TIMES A DAY (3 DF, TID (0.25 MG)
     Route: 048
     Dates: start: 20080718
  4. LEPTICUR [Suspect]
     Active Substance: TROPATEPINE HYDROCHLORIDE
     Indication: PSYCHOTIC DISORDER
     Dosage: 2 DOSAGE FORM, TWO TIMES A DAY (2 DF, BID (10 MG)
     Route: 048
     Dates: start: 20080621
  5. KETOPROFEN. [Concomitant]
     Active Substance: KETOPROFEN
     Indication: PRODUCT USED FOR UNKNOWN INDICATION
     Dosage: UNK
     Route: 065
     Dates: start: 20080622, end: 20080626
  6. AMOXICILLIN+CLAVULANIC ACID [Suspect]
     Active Substance: AMOXICILLIN\CLAVULANIC ACID
     Indication: PNEUMONIA ASPIRATION
     Dosage: 3 DOSAGE FORM, 3 TIMES A DAY (3 DF, TID (1 G)
     Route: 048
     Dates: start: 20080622, end: 20080630
  7. AMOXICILLIN CAPSULE [Suspect]
     Active Substance: AMOXICILLIN
     Indication: PRODUCT USED FOR UNKNOWN INDICATION
     Dosage: 1 GRAM, 3 TIMES A DAY (1 G, TID)
     Route: 065
     Dates: start: 20080622, end: 20080630
  8. PHLOROGLUCINOL [Concomitant]
     Active Substance: PHLOROGLUCINOL
     Indication: PRODUCT USED FOR UNKNOWN INDICATION
     Dosage: UNK
     Route: 065
     Dates: start: 20080626, end: 2008
  9. SALBUTAMOL SULFATE [Concomitant]
     Active Substance: ALBUTEROL SULFATE
     Indication: PRODUCT USED FOR UNKNOWN INDICATION
     Dosage: UNK
     Route: 065
     Dates: start: 20080629, end: 2008
  10. EFFERALGAN [Concomitant]
     Active Substance: ACETAMINOPHEN
     Indication: PRODUCT USED FOR UNKNOWN INDICATION
     Dosage: 500 MG, UNK (500 MG 6 DAILY)
     Route: 048
     Dates: start: 20080622, end: 20080625
  11. ABILIFY [Suspect]
     Active Substance: ARIPIPRAZOLE
     Indication: PSYCHOTIC DISORDER
     Dosage: 10 MILLIGRAM, ONCE A DAY (10 MG, QD)
     Route: 048
     Dates: start: 20080715
  12. ALPRAZOLAM TABLETS [Suspect]
     Active Substance: ALPRAZOLAM
     Indication: PRODUCT USED FOR UNKNOWN INDICATION
     Dosage: UNK
     Route: 065
     Dates: start: 20080718
  13. TERCIAN                            /00759301/ [Suspect]
     Active Substance: CYAMEMAZINE
     Indication: PSYCHOTIC DISORDER
     Dosage: 2 DOSAGE FORM, TWO TIMES A DAY (2 DF, BID (50 MG)
     Route: 048
     Dates: start: 20080718
  14. SOLIAN [Suspect]
     Active Substance: AMISULPRIDE
     Indication: PSYCHOTIC DISORDER
     Dosage: 50 MILLIGRAM, ONCE A DAY
     Route: 048
     Dates: start: 20080621
  15. LOXAPINE. [Suspect]
     Active Substance: LOXAPINE
     Indication: PSYCHOTIC DISORDER
     Dosage: 3 DOSAGE FORM, 3 TIMES A DAY (3 DF, TID (25 MG)
     Route: 065
     Dates: start: 20080703

REACTIONS (6)
  - Acute kidney injury [Fatal]
  - Diarrhoea infectious [Fatal]
  - Leukocytosis [Fatal]
  - Enterocolitis [Fatal]
  - Sepsis [Fatal]
  - Hyperleukocytosis [Fatal]

NARRATIVE: CASE EVENT DATE: 20080718
